FAERS Safety Report 12171499 (Version 2)
Quarter: 2016Q2

REPORT INFORMATION
  Report Type: Report from Study
  Country: GB (occurrence: GB)
  Receive Date: 20160311
  Receipt Date: 20160415
  Transmission Date: 20160815
  Serious: Yes (Death, Life-Threatening, Hospitalization)
  Sender: FDA-Public Use
  Company Number: GB-ROCHE-1723254

PATIENT
  Age: 79 Year
  Sex: Male
  Weight: 70 kg

DRUGS (12)
  1. FOLIC ACID. [Concomitant]
     Active Substance: FOLIC ACID
     Route: 065
  2. 5-FLUOROURACIL [Suspect]
     Active Substance: FLUOROURACIL
     Indication: COLORECTAL CANCER METASTATIC
     Dosage: LAST DOSE PRIOR TO SAE 18/FEB/2016
     Route: 042
     Dates: start: 20160204, end: 20160305
  3. OXALIPLATIN. [Suspect]
     Active Substance: OXALIPLATIN
     Indication: COLORECTAL CANCER METASTATIC
     Dosage: LAST DOSE PRIOR TO SAE 18/FEB/2016
     Route: 042
     Dates: start: 20160204
  4. PARACETAMOL [Concomitant]
     Active Substance: ACETAMINOPHEN
     Indication: STOMATITIS
     Route: 065
     Dates: end: 20160223
  5. AZITHROMYCIN ANHYDROUS. [Concomitant]
     Active Substance: AZITHROMYCIN ANHYDROUS
     Route: 065
     Dates: start: 201512
  6. FLUCONAZOLE. [Concomitant]
     Active Substance: FLUCONAZOLE
     Route: 065
     Dates: start: 20160223, end: 20160301
  7. BEVACIZUMAB [Suspect]
     Active Substance: BEVACIZUMAB
     Indication: COLORECTAL CANCER METASTATIC
     Dosage: LAST DOSE PRIOR TO SAE 18/FEB/2016
     Route: 042
     Dates: start: 20160204
  8. FOLINIC ACID [Suspect]
     Active Substance: LEUCOVORIN
     Indication: COLORECTAL CANCER METASTATIC
     Dosage: LAST DOSE PRIOR TO SAE 18/FEB/2016
     Route: 042
     Dates: start: 20160204, end: 20160305
  9. VITAMIN B12 [Concomitant]
     Active Substance: CYANOCOBALAMIN
  10. DIFFLAM [Concomitant]
     Active Substance: BENZYDAMINE HYDROCHLORIDE
     Indication: STOMATITIS
     Route: 065
     Dates: start: 20160223, end: 20160305
  11. SALBUTAMOL [Concomitant]
     Active Substance: ALBUTEROL
     Route: 065
  12. XYLOCAINE [Concomitant]
     Active Substance: LIDOCAINE HYDROCHLORIDE
     Route: 065
     Dates: start: 20160229, end: 20160305

REACTIONS (3)
  - Bone marrow failure [Fatal]
  - Neutropenic sepsis [Fatal]
  - Pneumonia [Fatal]

NARRATIVE: CASE EVENT DATE: 20160303
